FAERS Safety Report 21423707 (Version 1)
Quarter: 2022Q4

REPORT INFORMATION
  Report Type: Report from Study
  Country: US (occurrence: None)
  Receive Date: 20221007
  Receipt Date: 20221007
  Transmission Date: 20230112
  Serious: Yes (Other)
  Sender: FDA-Public Use
  Company Number: US-ROCHE-3191750

PATIENT
  Age: 56 Year
  Sex: Female
  Weight: 57 kg

DRUGS (18)
  1. RANIBIZUMAB [Suspect]
     Active Substance: RANIBIZUMAB
     Indication: Diabetic retinal oedema
     Dosage: ^FREQUENCY OF REFILL OF THE IMPLANT: ONCE IN 24 WEEKS?DOSE OF STUDY DRUG FIRST ADMINISTERED IS 10 MG
     Route: 050
     Dates: start: 20200805
  2. RANIBIZUMAB [Suspect]
     Active Substance: RANIBIZUMAB
  3. RANIBIZUMAB [Suspect]
     Active Substance: RANIBIZUMAB
  4. RANIBIZUMAB [Suspect]
     Active Substance: RANIBIZUMAB
  5. RANIBIZUMAB [Suspect]
     Active Substance: RANIBIZUMAB
  6. RANIBIZUMAB [Suspect]
     Active Substance: RANIBIZUMAB
  7. RANIBIZUMAB [Concomitant]
     Active Substance: RANIBIZUMAB
     Dosage: FIRST DOSE OF RANIBIZUMAB IS 6MG/ML?17/AUG/2022 MOST RECENT DOSE OF RANIBIZUMAB WAS ADMINISTERED PRI
     Route: 050
     Dates: start: 20200902
  8. NOVOLIN R [Concomitant]
     Active Substance: INSULIN HUMAN
     Route: 058
     Dates: start: 1995
  9. ALBUTEROL [Concomitant]
     Active Substance: ALBUTEROL
     Indication: Asthma
     Route: 055
     Dates: start: 1986
  10. POTASSIUM [Concomitant]
     Active Substance: POTASSIUM
     Indication: Hypokalaemia
     Route: 048
     Dates: start: 2006
  11. HYDROCHLOROTHIAZIDE [Concomitant]
     Active Substance: HYDROCHLOROTHIAZIDE
     Indication: Oedema peripheral
     Route: 065
     Dates: start: 202002
  12. ZYRTEC [Concomitant]
     Active Substance: CETIRIZINE HYDROCHLORIDE
     Indication: Seasonal allergy
     Route: 065
     Dates: start: 202003
  13. BASAGLAR [Concomitant]
     Active Substance: INSULIN GLARGINE
     Route: 065
     Dates: start: 202002
  14. SYSTANE (HYPROMELLOSE 2910 (4000 MPA.S)) [Concomitant]
     Active Substance: HYPROMELLOSE 2910 (4000 MPA.S)
     Indication: Dry eye
     Route: 065
     Dates: start: 2011
  15. TEMAZEPAM [Concomitant]
     Active Substance: TEMAZEPAM
     Indication: Insomnia
     Route: 048
     Dates: start: 20210601
  16. LEVOFLOXACIN [Concomitant]
     Active Substance: LEVOFLOXACIN
     Indication: Lower respiratory tract infection
     Route: 048
     Dates: start: 20220413
  17. VANACOF DM [Concomitant]
     Active Substance: DEXTROMETHORPHAN HYDROBROMIDE\GUAIFENESIN\PHENYLEPHRINE HYDROCHLORIDE
     Indication: Lower respiratory tract infection
     Route: 048
     Dates: start: 20220413
  18. DICLOFENAC [Concomitant]
     Active Substance: DICLOFENAC
     Route: 065
     Dates: start: 20220714

REACTIONS (1)
  - Connective tissue disorder [Not Recovered/Not Resolved]

NARRATIVE: CASE EVENT DATE: 20220929
